FAERS Safety Report 6172893-1 (Version None)
Quarter: 2009Q2

REPORT INFORMATION
  Report Type: 
  Country: None (occurrence: None)
  Receive Date: 20090430
  Receipt Date: 20090417
  Transmission Date: 20091009
  Serious: Yes (Hospitalization)
  Sender: FDA-Public Use
  Company Number: AU-CELGENEUS-008-20785-09031715

PATIENT
  Sex: Male
  Weight: 94 kg

DRUGS (9)
  1. THALIDOMIDE [Suspect]
     Route: 048
     Dates: start: 20080910, end: 20081210
  2. ALPRAZOLAM [Concomitant]
     Indication: DEPRESSION
     Route: 065
  3. ALPRAZOLAM [Concomitant]
     Indication: ANXIETY
  4. WARFARIN [Concomitant]
     Route: 065
  5. CLODRONATE [Concomitant]
     Route: 065
  6. AMLODIPINE [Concomitant]
     Indication: HYPERTENSION
     Route: 065
  7. CLONAZEPAM [Concomitant]
     Indication: DRUG USE FOR UNKNOWN INDICATION
     Route: 065
  8. MODAFINIL [Concomitant]
     Indication: ANXIETY
     Route: 065
  9. ACETAMINOPHEN [Concomitant]
     Indication: DRUG USE FOR UNKNOWN INDICATION
     Route: 065

REACTIONS (7)
  - CLOSTRIDIUM COLITIS [None]
  - CONFUSIONAL STATE [None]
  - DELIRIUM [None]
  - DEPRESSION [None]
  - MUSCLE HAEMORRHAGE [None]
  - NAUSEA [None]
  - RESPIRATORY FAILURE [None]
